FAERS Safety Report 17294618 (Version 1)
Quarter: 2020Q1

REPORT INFORMATION
  Report Type: Spontaneous
  Country: US (occurrence: US)
  Receive Date: 20200121
  Receipt Date: 20200121
  Transmission Date: 20200409
  Serious: No
  Sender: FDA-Public Use
  Company Number: US-MYLANLABS-2020M1001971

PATIENT
  Sex: Female
  Weight: 75 kg

DRUGS (1)
  1. LIDOCAINE PATCH [Suspect]
     Active Substance: LIDOCAINE
     Indication: PAIN IN EXTREMITY
     Dosage: UNK
     Route: 003

REACTIONS (4)
  - Product adhesion issue [Not Recovered/Not Resolved]
  - Off label use [Unknown]
  - Product quality issue [Unknown]
  - Drug ineffective [Not Recovered/Not Resolved]
